FAERS Safety Report 16071647 (Version 1)
Quarter: 2019Q1

REPORT INFORMATION
  Report Type: Spontaneous
  Country: US (occurrence: US)
  Receive Date: 20190213
  Receipt Date: 20190213
  Transmission Date: 20190418
  Serious: Yes (Life-Threatening, Hospitalization, Disabling)
  Sender: FDA-Public Use
  Company Number: None

PATIENT
  Age: 64 Year
  Sex: Male
  Weight: 80.74 kg

DRUGS (6)
  1. CODLIVER OIL [Concomitant]
  2. MILK [Concomitant]
     Active Substance: COW MILK
  3. CENTRUM SILVER [Concomitant]
     Active Substance: MINERALS\VITAMINS
  4. TEGRETOL [Suspect]
     Active Substance: CARBAMAZEPINE
     Indication: PSYCHOLOGICAL ABUSE
  5. WHEAT. [Concomitant]
     Active Substance: WHEAT
  6. LISINOPRIL. [Concomitant]
     Active Substance: LISINOPRIL

REACTIONS (11)
  - Urticaria [None]
  - Headache [None]
  - Coordination abnormal [None]
  - Petit mal epilepsy [None]
  - Generalised tonic-clonic seizure [None]
  - Somnolence [None]
  - Fatigue [None]
  - Dry mouth [None]
  - Dysarthria [None]
  - Nausea [None]
  - Balance disorder [None]
